FAERS Safety Report 10213392 (Version 1)
Quarter: 2014Q2

REPORT INFORMATION
  Report Type: Spontaneous
  Country: US (occurrence: None)
  Receive Date: 20140529
  Receipt Date: 20140529
  Transmission Date: 20141212
  Serious: Yes (Hospitalization)
  Sender: FDA-Public Use
  Company Number: 2014STPI000208

PATIENT
  Age: 63 Year
  Sex: Female
  Weight: 72.1 kg

DRUGS (1)
  1. MATULANE [Suspect]
     Indication: HODGKIN^S DISEASE
     Route: 048

REACTIONS (1)
  - Nonspecific reaction [None]
